FAERS Safety Report 25656427 (Version 1)
Quarter: 2025Q3

REPORT INFORMATION
  Report Type: Spontaneous
  Country: TR (occurrence: TR)
  Receive Date: 20250807
  Receipt Date: 20250807
  Transmission Date: 20251021
  Serious: Yes (Life-Threatening, Other)
  Sender: NOVARTIS
  Company Number: TR-002147023-NVSC2025TR125036

PATIENT
  Sex: Male

DRUGS (2)
  1. EVEROLIMUS [Suspect]
     Active Substance: EVEROLIMUS
     Indication: Liver transplant
     Route: 065
  2. ENALAPRIL [Concomitant]
     Active Substance: ENALAPRIL
     Indication: Hypertension
     Route: 065

REACTIONS (2)
  - Aortic dissection [Recovered/Resolved]
  - Graft infection [Recovered/Resolved]
